FAERS Safety Report 11313604 (Version 5)
Quarter: 2016Q1

REPORT INFORMATION
  Report Type: Spontaneous
  Country: JP (occurrence: JP)
  Receive Date: 20150727
  Receipt Date: 20160308
  Transmission Date: 20160525
  Serious: Yes (Hospitalization)
  Sender: FDA-Public Use
  Company Number: JP-ACTELION-A-CH2015-121294

PATIENT
  Age: 69 Year
  Sex: Female
  Weight: 48.5 kg

DRUGS (7)
  1. OPSUMIT [Suspect]
     Active Substance: MACITENTAN
     Dosage: 10 MG, QD
     Route: 048
     Dates: start: 20150718
  2. AMPICILLIN AND SULBACTAM [Suspect]
     Active Substance: AMPICILLIN SODIUM\SULBACTAM SODIUM
     Indication: C-REACTIVE PROTEIN INCREASED
     Dosage: UNK
     Route: 065
     Dates: start: 20150711, end: 20150714
  3. TADALAFIL [Concomitant]
     Active Substance: TADALAFIL
  4. ASPIRIN. [Suspect]
     Active Substance: ASPIRIN
     Indication: PRODUCT USED FOR UNKNOWN INDICATION
     Route: 048
  5. ESOMEPRAZOLE [Concomitant]
     Active Substance: ESOMEPRAZOLE
  6. OPSUMIT [Suspect]
     Active Substance: MACITENTAN
     Indication: PULMONARY ARTERIAL HYPERTENSION
     Dosage: 10 MG, QD
     Route: 048
     Dates: start: 20150710, end: 20150715
  7. OXYGEN. [Concomitant]
     Active Substance: OXYGEN

REACTIONS (12)
  - Pyrexia [Recovering/Resolving]
  - Anaemia [Recovered/Resolved]
  - Alanine aminotransferase increased [Recovered/Resolved]
  - Concomitant disease aggravated [Recovering/Resolving]
  - Epistaxis [Recovered/Resolved]
  - Aspartate aminotransferase increased [Recovered/Resolved]
  - Haematocrit decreased [Recovered/Resolved]
  - Atypical mycobacterial infection [Recovering/Resolving]
  - Hepatic function abnormal [Recovered/Resolved]
  - Haemoglobin decreased [Recovered/Resolved]
  - C-reactive protein increased [Recovering/Resolving]
  - Red blood cell count decreased [Recovered/Resolved]

NARRATIVE: CASE EVENT DATE: 20150711
